FAERS Safety Report 5828480-5 (Version None)
Quarter: 2008Q3

REPORT INFORMATION
  Report Type: 
  Country: None (occurrence: None)
  Receive Date: 20080731
  Receipt Date: 20080723
  Transmission Date: 20090109
  Serious: Yes (Hospitalization)
  Sender: FDA-Public Use
  Company Number: US-WATSON-2008-04491

PATIENT
  Age: 45 Year
  Sex: Female

DRUGS (2)
  1. FIORINAL [Suspect]
     Indication: INTENTIONAL DRUG MISUSE
     Dosage: UNK
     Route: 048
  2. FIORICET [Suspect]
     Indication: INTENTIONAL DRUG MISUSE
     Dosage: UNK
     Route: 048

REACTIONS (3)
  - DRUG TOXICITY [None]
  - TORSADE DE POINTES [None]
  - VENTRICULAR TACHYCARDIA [None]
